FAERS Safety Report 9401582 (Version 1)
Quarter: 2013Q3

REPORT INFORMATION
  Report Type: Spontaneous
  Country: FR (occurrence: FR)
  Receive Date: 20130716
  Receipt Date: 20130716
  Transmission Date: 20140515
  Serious: Yes (Life-Threatening)
  Sender: FDA-Public Use
  Company Number: FR-BRISTOL-MYERS SQUIBB COMPANY-19088061

PATIENT
  Age: 66 Year
  Sex: Male

DRUGS (1)
  1. KOMBOGLYZE [Suspect]
     Indication: DIABETES MELLITUS
     Route: 048
     Dates: end: 20130608

REACTIONS (2)
  - Hypovolaemic shock [Not Recovered/Not Resolved]
  - Renal failure acute [Not Recovered/Not Resolved]
